FAERS Safety Report 8476399-6 (Version None)
Quarter: 2012Q2

REPORT INFORMATION
  Report Type: 
  Country: None (occurrence: None)
  Receive Date: 20120622
  Receipt Date: 20120611
  Transmission Date: 20120825
  Serious: Yes (Other)
  Sender: FDA-Public Use
  Company Number: FK201201654

PATIENT
  Age: 17 Year
  Sex: Female

DRUGS (1)
  1. HALOPERIDOL [Suspect]
     Indication: SUICIDE ATTEMPT
     Dosage: 5 MG, 10 TABLETS INGESTED, ORAL
     Route: 048

REACTIONS (6)
  - SUICIDE ATTEMPT [None]
  - INTENTIONAL OVERDOSE [None]
  - SINUS TACHYCARDIA [None]
  - AGITATION [None]
  - JOINT DISLOCATION [None]
  - DYSTONIA [None]
